FAERS Safety Report 6595501-4 (Version None)
Quarter: 2010Q1

REPORT INFORMATION
  Report Type: 
  Country: None (occurrence: None)
  Receive Date: 20100223
  Receipt Date: 20100216
  Transmission Date: 20100710
  Serious: Yes (Death, Hospitalization)
  Sender: FDA-Public Use
  Company Number: FR-MPIJNJ-2010-01062

PATIENT

DRUGS (19)
  1. VELCADE [Suspect]
     Indication: MULTIPLE MYELOMA
     Dosage: UNK
     Dates: start: 20081002, end: 20081013
  2. VELCADE [Suspect]
     Dosage: UNK
     Dates: start: 20081027, end: 20081103
  3. VELCADE [Suspect]
     Dosage: UNK
     Dates: start: 20081114, end: 20081124
  4. VELCADE [Suspect]
     Dosage: UNK
     Dates: start: 20081204, end: 20081215
  5. VELCADE [Suspect]
     Dosage: UNK
     Dates: start: 20090105, end: 20090112
  6. DEXAMETHASONE [Concomitant]
     Indication: MULTIPLE MYELOMA
     Dosage: 40 MG, UNK
     Route: 048
     Dates: start: 20081113, end: 20090115
  7. DOXORUBICIN [Concomitant]
     Indication: MULTIPLE MYELOMA
     Dosage: 58.2 MG, UNK
     Route: 042
     Dates: start: 20090105, end: 20090115
  8. ATORVASTATIN CALCIUM [Concomitant]
     Route: 048
  9. AMLODIPINE [Concomitant]
     Route: 048
  10. OMEPRAZOLE [Concomitant]
     Dosage: UNK
     Route: 048
  11. LACTULOSE [Concomitant]
     Dosage: UNK
     Route: 048
     Dates: end: 20090114
  12. DI-ANTALVIC                        /00016701/ [Concomitant]
  13. ERYTHROPOIETIN HUMAN [Concomitant]
     Dosage: UNK
     Route: 058
     Dates: end: 20090105
  14. HEPARIN [Concomitant]
     Dosage: UNK
     Route: 042
     Dates: start: 20081010, end: 20090105
  15. CEFTRIAXON [Concomitant]
     Dosage: UNK
     Route: 042
     Dates: start: 20081231, end: 20090109
  16. CEFTRIAXON [Concomitant]
     Dosage: UNK
     Dates: start: 20080920, end: 20080930
  17. LEVOFLOXACIN [Concomitant]
     Dosage: UNK
     Route: 048
     Dates: start: 20090102, end: 20090109
  18. BRICANYL [Concomitant]
     Dosage: UNK
     Dates: start: 20090105
  19. MORPHINE [Concomitant]
     Dosage: UNK
     Dates: start: 20090112

REACTIONS (1)
  - DISEASE PROGRESSION [None]
